FAERS Safety Report 19366392 (Version 1)
Quarter: 2021Q2

REPORT INFORMATION
  Report Type: Spontaneous
  Country: BA (occurrence: BA)
  Receive Date: 20210602
  Receipt Date: 20210602
  Transmission Date: 20210717
  Serious: Yes (Other)
  Sender: FDA-Public Use
  Company Number: BA-LUPIN PHARMACEUTICALS INC.-2021-08737

PATIENT
  Sex: Female
  Weight: 2.25 kg

DRUGS (7)
  1. AZITHROMYCIN ANHYDROUS. [Suspect]
     Active Substance: AZITHROMYCIN ANHYDROUS
     Indication: ANTIBIOTIC THERAPY
     Dosage: UNK
     Route: 064
  2. INDOMETACIN [Suspect]
     Active Substance: INDOMETHACIN
     Indication: TOCOLYSIS
     Dosage: 100 MILLIGRAM
     Route: 064
  3. HYDROXYPROGESTERONE [Suspect]
     Active Substance: HYDROXYPROGESTERONE
     Indication: TOCOLYSIS
     Dosage: UNK, DOSE: 250 MG/ML
     Route: 064
  4. CEFTRIAXONE. [Suspect]
     Active Substance: CEFTRIAXONE
     Indication: ANTIBIOTIC THERAPY
     Dosage: UNK
     Route: 064
  5. PROGESTERONE. [Suspect]
     Active Substance: PROGESTERONE
     Indication: TOCOLYSIS
     Dosage: UNK
     Route: 064
  6. NITROGLYCERIN. [Suspect]
     Active Substance: NITROGLYCERIN
     Indication: TOCOLYSIS
     Dosage: 100 MICROGRAM
     Route: 064
  7. AMOXICILLIN. [Suspect]
     Active Substance: AMOXICILLIN
     Indication: ENTEROCOCCAL INFECTION
     Dosage: UNK
     Route: 064
     Dates: start: 2018, end: 2018

REACTIONS (5)
  - Umbilical cord abnormality [Unknown]
  - Low birth weight baby [Unknown]
  - Perineal injury [Unknown]
  - Foetal exposure during pregnancy [Unknown]
  - Premature baby [Unknown]

NARRATIVE: CASE EVENT DATE: 201803
